FAERS Safety Report 10480610 (Version 1)
Quarter: 2014Q3

REPORT INFORMATION
  Report Type: Spontaneous
  Country: US (occurrence: None)
  Receive Date: 20140904
  Receipt Date: 20140904
  Transmission Date: 20150326
  Serious: No
  Sender: FDA-Public Use
  Company Number: 229047LEO

PATIENT
  Age: 48 Year
  Sex: Male

DRUGS (1)
  1. PICATO [Suspect]
     Active Substance: INGENOL MEBUTATE
     Indication: ACTINIC KERATOSIS
     Dosage: TOPICAL, USED ONE DAY THE 4 DAY BREAK THEN USED AGAIN
     Route: 061
     Dates: start: 20140705, end: 20140708

REACTIONS (10)
  - Blister rupture [None]
  - Application site erythema [None]
  - Application site vesicles [None]
  - Application site discharge [None]
  - Application site oedema [None]
  - Application site swelling [None]
  - Incorrect drug administration duration [None]
  - Application site reaction [None]
  - Application site pain [None]
  - Incorrect dose administered [None]
